FAERS Safety Report 5498863-4 (Version None)
Quarter: 2007Q4

REPORT INFORMATION
  Report Type: 
  Country: None (occurrence: None)
  Receive Date: 20071026
  Receipt Date: 20070727
  Transmission Date: 20080405
  Serious: No
  Sender: FDA-Public Use
  Company Number: A0666760A

PATIENT
  Age: 75 Year
  Sex: Female

DRUGS (9)
  1. ADVAIR DISKUS 100/50 [Suspect]
     Indication: ASTHMA
     Route: 055
     Dates: start: 20070501
  2. SEREVENT [Suspect]
     Indication: CHRONIC OBSTRUCTIVE PULMONARY DISEASE
     Dosage: 50MCG PER DAY
     Route: 055
     Dates: start: 20070501
  3. PREMARIN [Concomitant]
  4. TOPROL-XL [Concomitant]
  5. BENICAR [Concomitant]
  6. FLUOXETINE [Concomitant]
  7. PROTONIX [Concomitant]
  8. VYTORIN [Concomitant]
  9. ENABLEX [Concomitant]

REACTIONS (1)
  - MUSCLE SPASMS [None]
